FAERS Safety Report 6812884-8 (Version None)
Quarter: 2010Q3

REPORT INFORMATION
  Report Type: 
  Country: None (occurrence: None)
  Receive Date: 20100701
  Receipt Date: 20100623
  Transmission Date: 20110219
  Serious: Yes (Hospitalization)
  Sender: FDA-Public Use
  Company Number: CN-JNJFOC-20100607137

PATIENT
  Age: 42 Year
  Sex: Female

DRUGS (3)
  1. SPORANOX [Suspect]
     Indication: ANTIFUNGAL PROPHYLAXIS
     Route: 042
  2. FLUCONAZOLE [Concomitant]
     Indication: ANTIFUNGAL PROPHYLAXIS
     Route: 065
  3. AMBROXOL HYDROCHLORIDE [Concomitant]
     Route: 065

REACTIONS (2)
  - CONJUNCTIVAL HYPERAEMIA [None]
  - VISION BLURRED [None]
